FAERS Safety Report 5446283-0 (Version None)
Quarter: 2007Q3

REPORT INFORMATION
  Report Type: 
  Country: None (occurrence: None)
  Receive Date: 20070907
  Receipt Date: 20070827
  Transmission Date: 20080115
  Serious: Yes (Disabling, Other)
  Sender: FDA-Public Use
  Company Number: US-ELI_LILLY_AND_COMPANY-US200708005981

PATIENT
  Sex: Female

DRUGS (2)
  1. FORTEO [Suspect]
     Indication: OSTEOPOROSIS
     Dates: start: 20051101, end: 20051201
  2. FIORINAL W/CODEINE [Concomitant]
     Indication: PAIN

REACTIONS (5)
  - BACK PAIN [None]
  - HIP FRACTURE [None]
  - PAIN [None]
  - PAIN IN EXTREMITY [None]
  - PHYSICAL DISABILITY [None]
